FAERS Safety Report 8423397-4 (Version None)
Quarter: 2012Q2

REPORT INFORMATION
  Report Type: 
  Country: None (occurrence: None)
  Receive Date: 20120608
  Receipt Date: 20120604
  Transmission Date: 20120825
  Serious: No
  Sender: FDA-Public Use
  Company Number: US-ENDO PHARMACEUTICALS INC.-OPIR20120102

PATIENT
  Sex: Female

DRUGS (2)
  1. OPANA [Suspect]
     Indication: ARTHRALGIA
     Route: 048
     Dates: start: 20120101
  2. OPANA ER [Concomitant]
     Indication: ARTHRALGIA
     Dosage: 10 MG
     Route: 048
     Dates: end: 20120101

REACTIONS (1)
  - DRUG INEFFECTIVE [None]
